FAERS Safety Report 14878616 (Version 1)
Quarter: 2018Q2

REPORT INFORMATION
  Report Type: Spontaneous
  Country: CN (occurrence: CN)
  Receive Date: 20180511
  Receipt Date: 20180511
  Transmission Date: 20180711
  Serious: Yes (Hospitalization)
  Sender: FDA-Public Use
  Company Number: CN-BAXTER-2018BAX013928

PATIENT
  Age: 44 Year
  Sex: Male
  Weight: 66 kg

DRUGS (4)
  1. CLEXANE [Suspect]
     Active Substance: ENOXAPARIN SODIUM
     Indication: HYPOAESTHESIA
     Route: 058
     Dates: start: 20180309, end: 20180309
  2. MECOBALAMIN [Suspect]
     Active Substance: METHYLCOBALAMIN
     Indication: ADJUVANT THERAPY
     Route: 065
     Dates: start: 20180309
  3. 20% MANNITOL INJECTION [Suspect]
     Active Substance: MANNITOL
     Indication: HYPOAESTHESIA
     Route: 041
     Dates: start: 20180309, end: 20180309
  4. DEXAMETHASONE SODIUM PHOSPHATE. [Suspect]
     Active Substance: DEXAMETHASONE SODIUM PHOSPHATE
     Indication: HYPOAESTHESIA
     Route: 041
     Dates: start: 20180309, end: 20180309

REACTIONS (1)
  - Vision blurred [Recovered/Resolved]

NARRATIVE: CASE EVENT DATE: 20180309
